FAERS Safety Report 23229001 (Version 2)
Quarter: 2024Q1

REPORT INFORMATION
  Report Type: Report from Study
  Country: US (occurrence: US)
  Receive Date: 20231126
  Receipt Date: 20240223
  Transmission Date: 20240410
  Serious: Yes (Other)
  Sender: FDA-Public Use
  Company Number: US-ABBVIE-4344776

PATIENT
  Sex: Female

DRUGS (7)
  1. RINVOQ [Suspect]
     Active Substance: UPADACITINIB
     Indication: Colitis ulcerative
     Dosage: ER?FORM STRENGTH: 45 MG?THERAPY STOP DATE 2023
     Route: 048
     Dates: start: 20230205
  2. RINVOQ [Suspect]
     Active Substance: UPADACITINIB
     Indication: Colitis ulcerative
     Dosage: STRENGTH 30 MG, ER
     Route: 048
     Dates: start: 202304, end: 202309
  3. RINVOQ [Suspect]
     Active Substance: UPADACITINIB
     Indication: Colitis ulcerative
     Dosage: STRENGTH 30 MG, ER
     Route: 048
     Dates: start: 202309, end: 20230926
  4. RINVOQ [Suspect]
     Active Substance: UPADACITINIB
     Indication: Colitis ulcerative
     Dosage: STRENGTH 30 MG, ER
     Route: 048
     Dates: start: 20231009, end: 202401
  5. RINVOQ [Suspect]
     Active Substance: UPADACITINIB
     Indication: Colitis ulcerative
     Dosage: FORM STRENGTH 45MG
     Route: 048
     Dates: start: 20230207
  6. RINVOQ [Suspect]
     Active Substance: UPADACITINIB
     Indication: Colitis ulcerative
     Dosage: THERAPY START DATE 2023?THERAPY END DATE 2023?HAD TO TAKE MEDICATION EVERY OTHER DAY TO STRETCH I...
     Route: 048
  7. RINVOQ [Suspect]
     Active Substance: UPADACITINIB
     Indication: Colitis ulcerative
     Route: 048
     Dates: start: 2024

REACTIONS (11)
  - Foot operation [Unknown]
  - Colitis ulcerative [Unknown]
  - Insomnia [Not Recovered/Not Resolved]
  - Defaecation urgency [Not Recovered/Not Resolved]
  - Arthralgia [Not Recovered/Not Resolved]
  - Pneumonia [Unknown]
  - COVID-19 [Unknown]
  - Night sweats [Unknown]
  - Hot flush [Unknown]
  - Vomiting [Unknown]
  - Gastric infection [Unknown]

NARRATIVE: CASE EVENT DATE: 20230101
